FAERS Safety Report 12916739 (Version 1)
Quarter: 2016Q4

REPORT INFORMATION
  Report Type: Spontaneous
  Country: US (occurrence: US)
  Receive Date: 20161107
  Receipt Date: 20161107
  Transmission Date: 20170207
  Serious: No
  Sender: FDA-Public Use
  Company Number: US-JAZZ-2016-US-017313

PATIENT
  Sex: Female

DRUGS (18)
  1. MELATONIN [Concomitant]
     Active Substance: MELATONIN
  2. MODAFINIL. [Concomitant]
     Active Substance: MODAFINIL
  3. RELPAX [Concomitant]
     Active Substance: ELETRIPTAN HYDROBROMIDE
  4. TOPIRAMATE. [Concomitant]
     Active Substance: TOPIRAMATE
  5. ADDERALL [Concomitant]
     Active Substance: AMPHETAMINE ASPARTATE\AMPHETAMINE SULFATE\DEXTROAMPHETAMINE SACCHARATE\DEXTROAMPHETAMINE SULFATE
  6. BACLOFEN. [Concomitant]
     Active Substance: BACLOFEN
  7. DEXAMETHASONE. [Concomitant]
     Active Substance: DEXAMETHASONE
  8. KLONOPIN [Concomitant]
     Active Substance: CLONAZEPAM
  9. XYREM [Suspect]
     Active Substance: SODIUM OXYBATE
     Dosage: 4.5 G, BID
     Route: 048
     Dates: start: 201609
  10. XYREM [Suspect]
     Active Substance: SODIUM OXYBATE
     Indication: INSOMNIA
     Dosage: 2.25 G, BID
     Route: 048
     Dates: start: 201608, end: 201609
  11. ALIGN [Concomitant]
     Active Substance: BIFIDOBACTERIUM LONGUM SUBSP. INFANTIS
  12. VITAMIN D2 [Concomitant]
     Active Substance: ERGOCALCIFEROL
  13. COZAAR [Concomitant]
     Active Substance: LOSARTAN POTASSIUM
  14. METHADONE HCL [Concomitant]
     Active Substance: METHADONE HYDROCHLORIDE
  15. VAGIFEM [Concomitant]
     Active Substance: ESTRADIOL
  16. ZOFRAN [Concomitant]
     Active Substance: ONDANSETRON HYDROCHLORIDE
  17. ARTHROTEC [Concomitant]
     Active Substance: DICLOFENAC SODIUM\MISOPROSTOL
  18. BELSOMRA [Concomitant]
     Active Substance: SUVOREXANT

REACTIONS (1)
  - Nasopharyngitis [Not Recovered/Not Resolved]

NARRATIVE: CASE EVENT DATE: 2016
